FAERS Safety Report 11745754 (Version 1)
Quarter: 2015Q4

REPORT INFORMATION
  Report Type: Spontaneous
  Country: US (occurrence: US)
  Receive Date: 20151117
  Receipt Date: 20151117
  Transmission Date: 20160304
  Serious: No
  Sender: FDA-Public Use
  Company Number: US-MYLANLABS-2015M1026594

PATIENT
  Age: 88 Year
  Sex: Male

DRUGS (1)
  1. TOLTERODINE TARTRATE EXTENDED-RELEASE CAPSULES [Suspect]
     Active Substance: TOLTERODINE TARTRATE
     Indication: INCONTINENCE
     Dosage: 4 MG, QD
     Route: 048
     Dates: start: 20150801

REACTIONS (1)
  - Drug ineffective [Not Recovered/Not Resolved]

NARRATIVE: CASE EVENT DATE: 20150801
